FAERS Safety Report 7822752-0 (Version None)
Quarter: 2011Q4

REPORT INFORMATION
  Report Type: 
  Country: None (occurrence: None)
  Receive Date: 20111018
  Receipt Date: 20111012
  Transmission Date: 20120403
  Serious: Yes (Other)
  Sender: FDA-Public Use
  Company Number: US-AMGEN-USASP2011040311

PATIENT
  Age: 36 Year
  Sex: Female
  Weight: 78 kg

DRUGS (11)
  1. CALCIUM CARBONATE [Concomitant]
     Dosage: UNK
  2. ZYRTEC [Concomitant]
     Dosage: UNK UNK, PRN
  3. METFORMIN HCL [Concomitant]
     Dosage: UNK
  4. VITAMINS                           /00067501/ [Concomitant]
     Dosage: UNK
  5. WELLBUTRIN [Concomitant]
     Dosage: UNK
  6. ENBREL [Suspect]
     Indication: RHEUMATOID ARTHRITIS
     Dosage: 50 UNK, QWK
     Dates: start: 20090511, end: 20091229
  7. SINGULAIR [Concomitant]
     Indication: ASTHMA
     Dosage: 10 MG, QD
     Route: 048
  8. ENBREL [Suspect]
     Dosage: 50 MG, QWK
     Dates: start: 20090501
  9. ENBREL [Suspect]
     Dosage: 50 UNK, QWK
     Dates: start: 20110619
  10. PRENEXA [Concomitant]
     Dosage: UNK
  11. FLU [Concomitant]

REACTIONS (2)
  - ANAEMIA OF PREGNANCY [None]
  - RHEUMATOID ARTHRITIS [None]
